FAERS Safety Report 5332144-4 (Version None)
Quarter: 2007Q2

REPORT INFORMATION
  Report Type: 
  Country: None (occurrence: None)
  Receive Date: 20070518
  Receipt Date: 20070511
  Transmission Date: 20071010
  Serious: Yes (Hospitalization)
  Sender: FDA-Public Use
  Company Number: 163-20785-07040253

PATIENT
  Age: 70 Year
  Sex: Female

DRUGS (11)
  1. THALOMID [Suspect]
     Indication: AMYLOIDOSIS
     Dosage: 100 MG, 2 IN 1 D, ORAL
     Route: 048
     Dates: start: 20070219, end: 20070303
  2. THALOMID [Suspect]
     Indication: MULTIPLE MYELOMA
     Dosage: 100 MG, 2 IN 1 D, ORAL
     Route: 048
     Dates: start: 20070219, end: 20070303
  3. DECADRON [Concomitant]
  4. SYNTHROID [Concomitant]
  5. REGLAN [Concomitant]
  6. PROTONIX [Concomitant]
  7. CALCIUM +S (LEKOVIT CA) [Concomitant]
  8. ZOLOFT [Concomitant]
  9. FISH OIL (FISH OIL) [Concomitant]
  10. ZELNORM [Concomitant]
  11. LACTULOSE [Concomitant]

REACTIONS (2)
  - CONSTIPATION [None]
  - ILEUS [None]
